FAERS Safety Report 8517089-0 (Version None)
Quarter: 2012Q3

REPORT INFORMATION
  Report Type: 
  Country: None (occurrence: None)
  Receive Date: 20120718
  Receipt Date: 20120716
  Transmission Date: 20120928
  Serious: Yes (Death, Life-Threatening, Congenital Anomaly)
  Sender: FDA-Public Use
  Company Number: DE-PFIZER INC-2012170145

PATIENT
  Sex: Male
  Weight: 0.33 kg

DRUGS (4)
  1. OMEPRAZOLE [Concomitant]
     Indication: GASTROOESOPHAGEAL REFLUX DISEASE
     Dosage: 20 MG, DAILY
     Route: 064
     Dates: start: 20111125, end: 20120419
  2. LEVOTHYROXINE SODIUM [Concomitant]
     Indication: HYPOTHYROIDISM
     Dosage: 75 UG, DAILY
     Route: 064
  3. VENLAFAXINE HCL [Suspect]
     Indication: ANXIETY DISORDER
     Dosage: 75 MG, DAILY
     Route: 064
     Dates: start: 20111125, end: 20120419
  4. FEMIBION [Concomitant]
     Indication: PROPHYLAXIS OF NEURAL TUBE DEFECT
     Dosage: 0.4 MG, DAILY
     Route: 064

REACTIONS (2)
  - POTTER'S SYNDROME [None]
  - MATERNAL EXPOSURE TIMING UNSPECIFIED [None]
